FAERS Safety Report 14560720 (Version 2)
Quarter: 2018Q1

REPORT INFORMATION
  Report Type: Spontaneous
  Country: US (occurrence: US)
  Receive Date: 20180222
  Receipt Date: 20180303
  Transmission Date: 20180509
  Serious: No
  Sender: FDA-Public Use
  Company Number: US-JNJFOC-20180209064

PATIENT
  Sex: Female

DRUGS (1)
  1. INVEGA SUSTENNA [Suspect]
     Active Substance: PALIPERIDONE PALMITATE
     Indication: MENTAL DISORDER
     Route: 030
     Dates: start: 2012

REACTIONS (6)
  - Pruritus generalised [Unknown]
  - Chest discomfort [Unknown]
  - Drug ineffective [Unknown]
  - Vitamin B complex deficiency [Unknown]
  - Injection site nerve damage [Unknown]
  - Injection site mass [Unknown]
